FAERS Safety Report 21395251 (Version 3)
Quarter: 2023Q1

REPORT INFORMATION
  Report Type: Spontaneous
  Country: US (occurrence: US)
  Receive Date: 20220930
  Receipt Date: 20230103
  Transmission Date: 20230418
  Serious: No
  Sender: FDA-Public Use
  Company Number: US-BRISTOL-MYERS SQUIBB COMPANY-2022-114264

PATIENT
  Age: 71 Year
  Sex: Female

DRUGS (2)
  1. POMALYST [Suspect]
     Active Substance: POMALIDOMIDE
     Indication: Plasma cell myeloma
     Dosage: DAILY
     Route: 048
     Dates: start: 20220909
  2. POMALYST [Suspect]
     Active Substance: POMALIDOMIDE
     Dosage: DAILY
     Route: 048
     Dates: start: 20220909

REACTIONS (9)
  - Diarrhoea [Unknown]
  - Adverse event [Unknown]
  - Fatigue [Unknown]
  - Muscle tightness [Unknown]
  - Throat tightness [Unknown]
  - Cold sweat [Unknown]
  - Malaise [Unknown]
  - Off label use [Unknown]
  - Pain in extremity [Unknown]
